FAERS Safety Report 7965877-1 (Version None)
Quarter: 2011Q4

REPORT INFORMATION
  Report Type: 
  Country: None (occurrence: None)
  Receive Date: 20111208
  Receipt Date: 20111205
  Transmission Date: 20120403
  Serious: Yes (Death, Hospitalization)
  Sender: FDA-Public Use
  Company Number: US-GLAXOSMITHKLINE-A0938680A

PATIENT
  Age: 65 Year
  Sex: Male

DRUGS (1)
  1. AVANDIA [Suspect]
     Indication: DIABETES MELLITUS
     Dosage: 8MG PER DAY
     Route: 048
     Dates: start: 20010314, end: 20101201

REACTIONS (5)
  - CORONARY ARTERY BYPASS [None]
  - STENT PLACEMENT [None]
  - MYOCARDIAL INFARCTION [None]
  - CARDIAC DEATH [None]
  - CARDIAC FAILURE CONGESTIVE [None]
